FAERS Safety Report 16012717 (Version 1)
Quarter: 2019Q1

REPORT INFORMATION
  Report Type: Spontaneous
  Country: US (occurrence: US)
  Receive Date: 20190131
  Receipt Date: 20190131
  Transmission Date: 20190418
  Serious: Yes (Death)
  Sender: FDA-Public Use
  Company Number: None

PATIENT
  Age: 74 Year
  Sex: Female

DRUGS (1)
  1. REVLIMID [Suspect]
     Active Substance: LENALIDOMIDE
     Indication: PLASMA CELL MYELOMA
     Route: 048
     Dates: start: 20180808, end: 20181231

REACTIONS (4)
  - Dysphonia [None]
  - Dysphagia [None]
  - Colitis ischaemic [None]
  - Pneumonia aspiration [None]

NARRATIVE: CASE EVENT DATE: 20190118
